FAERS Safety Report 5683157-4 (Version None)
Quarter: 2008Q1

REPORT INFORMATION
  Report Type: 
  Country: None (occurrence: None)
  Receive Date: 20080327
  Receipt Date: 20080317
  Transmission Date: 20080703
  Serious: Yes (Life-Threatening, Hospitalization)
  Sender: FDA-Public Use
  Company Number: FR-AMGEN-US244239

PATIENT
  Sex: Male

DRUGS (12)
  1. ENBREL [Suspect]
     Indication: RHEUMATOID ARTHRITIS
     Route: 058
     Dates: start: 20061001, end: 20070701
  2. CORTANCYL [Concomitant]
     Route: 048
     Dates: start: 19970101, end: 20070801
  3. CORTANCYL [Concomitant]
     Route: 048
     Dates: start: 20070801, end: 20070901
  4. CORTANCYL [Concomitant]
     Dosage: PROGRESSIVELY DECREASED
     Route: 048
     Dates: start: 20070901
  5. SPECIAFOLDINE [Concomitant]
     Dosage: UNKNOWN
     Route: 048
     Dates: start: 19950101
  6. ZOCOR [Concomitant]
     Dosage: UNKNOWN
  7. FOSAMAX [Concomitant]
     Dosage: UNKNOWN
     Route: 048
  8. COVERSYL [Concomitant]
     Dosage: UNKNOWN
  9. LERCANIDIPINE [Concomitant]
     Dosage: UNKNOWN
  10. KARDEGIC [Concomitant]
     Dosage: UNKNOWN
     Route: 065
  11. NOVATREX [Concomitant]
     Indication: RHEUMATOID ARTHRITIS
     Dosage: 10 TO 12.5 MG TOTAL WEEKLY
     Route: 048
     Dates: start: 19950101, end: 20070701
  12. MOBIC [Concomitant]
     Route: 048
     Dates: start: 20000101

REACTIONS (6)
  - ACUTE RESPIRATORY FAILURE [None]
  - CONDITION AGGRAVATED [None]
  - OXYGEN SATURATION DECREASED [None]
  - PULMONARY FIBROSIS [None]
  - RHEUMATOID LUNG [None]
  - SLEEP APNOEA SYNDROME [None]
